FAERS Safety Report 25383554 (Version 7)
Quarter: 2025Q3

REPORT INFORMATION
  Report Type: Report from Study
  Country: CA (occurrence: CA)
  Receive Date: 20250602
  Receipt Date: 20250924
  Transmission Date: 20251020
  Serious: Yes (Other)
  Sender: JOHNSON AND JOHNSON
  Company Number: CA-JNJFOC-20250537729

PATIENT
  Age: 14 Year
  Sex: Male

DRUGS (3)
  1. REMICADE [Suspect]
     Active Substance: INFLIXIMAB
     Indication: Colitis ulcerative
     Route: 041
     Dates: start: 20250203
  2. REMICADE [Suspect]
     Active Substance: INFLIXIMAB
     Dosage: BATCH NUMBER: 24G095, EXPIRY DATE AU 2027
     Route: 041
     Dates: start: 20250203
  3. Natarol [Concomitant]
     Indication: Product used for unknown indication

REACTIONS (3)
  - Colitis ulcerative [Not Recovered/Not Resolved]
  - Nasopharyngitis [Recovered/Resolved]
  - Anaemia [Unknown]

NARRATIVE: CASE EVENT DATE: 20250519
